FAERS Safety Report 8445375-1 (Version None)
Quarter: 2012Q2

REPORT INFORMATION
  Report Type: 
  Country: None (occurrence: None)
  Receive Date: 20120618
  Receipt Date: 20110503
  Transmission Date: 20120825
  Serious: No
  Sender: FDA-Public Use
  Company Number: US-TEVA-2011002204

PATIENT
  Sex: Female

DRUGS (4)
  1. ROXICODONE [Concomitant]
  2. FENTORA [Suspect]
     Indication: PAIN
     Route: 002
  3. KLONOPIN [Concomitant]
  4. SOMA [Concomitant]

REACTIONS (1)
  - GINGIVAL DISORDER [None]
